FAERS Safety Report 9024273 (Version 1)
Quarter: 2013Q1

REPORT INFORMATION
  Report Type: Spontaneous
  Country: US (occurrence: US)
  Receive Date: 20130121
  Receipt Date: 20130121
  Transmission Date: 20140127
  Serious: Yes (Death)
  Sender: FDA-Public Use
  Company Number: PHEH2013US001640

PATIENT
  Sex: Female

DRUGS (10)
  1. EVEROLIMUS [Suspect]
     Dosage: UNK
  2. ELTROMBOPAG [Suspect]
     Dosage: 25 MG, DAILY
     Route: 048
  3. THYROXINE SODIUM [Concomitant]
     Dosage: UNK
  4. FOLIC ACID [Concomitant]
  5. FISH OIL [Concomitant]
  6. MULTIVITAMIN [Concomitant]
  7. CALCIUM [Concomitant]
  8. ASPIRIN [Concomitant]
  9. CETRIZIN//CETIRIZINE HYDROCHLORIDE [Concomitant]
  10. MONTELUKAST SODIUM [Concomitant]

REACTIONS (1)
  - Death [Fatal]
